FAERS Safety Report 4292726-8 (Version None)
Quarter: 2004Q1

REPORT INFORMATION
  Report Type: 
  Country: None (occurrence: None)
  Receive Date: 20040211
  Receipt Date: 20031121
  Transmission Date: 20041129
  Serious: Yes (Disabling)
  Sender: FDA-Public Use
  Company Number: WAES 0311AUS00148

PATIENT
  Age: 58 Year
  Sex: Female

DRUGS (2)
  1. FOSAMAX [Suspect]
     Indication: OSTEOPOROSIS
     Route: 048
     Dates: start: 20030901, end: 20031101
  2. VITAMIN D (UNSPECIFIED) [Concomitant]

REACTIONS (2)
  - CATARACT [None]
  - VISION BLURRED [None]
